FAERS Safety Report 8178853-3 (Version None)
Quarter: 2012Q1

REPORT INFORMATION
  Report Type: 
  Country: None (occurrence: None)
  Receive Date: 20120302
  Receipt Date: 20120220
  Transmission Date: 20120608
  Serious: Yes (Hospitalization, Other)
  Sender: FDA-Public Use
  Company Number: FR-BRISTOL-MYERS SQUIBB COMPANY-16412504

PATIENT
  Age: 67 Year
  Sex: Female

DRUGS (12)
  1. CEFEPIME [Suspect]
     Indication: HYPERTENSION
     Route: 042
     Dates: start: 20120104, end: 20120116
  2. TENORMIN [Suspect]
     Indication: HYPERTENSION
     Route: 048
     Dates: end: 20120118
  3. ASPEGIC 1000 [Suspect]
  4. DUPHALAC [Suspect]
  5. LITHIUM CARBONATE [Concomitant]
     Dates: start: 19870101
  6. AMLODIPINE BESYLATE [Suspect]
     Indication: HYPERTENSION
     Route: 048
     Dates: end: 20120118
  7. RAMIPRIL [Suspect]
     Indication: HYPERTENSION
     Route: 048
     Dates: end: 20120118
  8. EFFEXOR [Suspect]
  9. BISOPROLOL FUMARATE [Concomitant]
  10. EFFEXOR [Suspect]
     Indication: HYPERTENSION
     Route: 048
     Dates: end: 20120118
  11. NEXIUM [Suspect]
  12. AMITRIPTYLINE HCL [Suspect]

REACTIONS (4)
  - FALL [None]
  - DEPRESSED LEVEL OF CONSCIOUSNESS [None]
  - HAEMOGLOBIN DECREASED [None]
  - RENAL FAILURE ACUTE [None]
